FAERS Safety Report 7024385-5 (Version None)
Quarter: 2010Q4

REPORT INFORMATION
  Report Type: 
  Country: None (occurrence: None)
  Receive Date: 20101001
  Receipt Date: 20100928
  Transmission Date: 20110411
  Serious: Yes (Hospitalization)
  Sender: FDA-Public Use
  Company Number: US-RB-015438-10

PATIENT
  Age: 27 Year
  Sex: Female

DRUGS (1)
  1. SUBOXONE TABLET [Suspect]
     Indication: DRUG DEPENDENCE
     Route: 060
     Dates: start: 20100602

REACTIONS (4)
  - DRUG DEPENDENCE [None]
  - OVARIAN CYST RUPTURED [None]
  - PAIN [None]
  - VOMITING [None]
